FAERS Safety Report 8384226-0 (Version None)
Quarter: 2012Q2

REPORT INFORMATION
  Report Type: 
  Country: None (occurrence: None)
  Receive Date: 20120524
  Receipt Date: 20120515
  Transmission Date: 20120825
  Serious: Yes (Disabling, Other)
  Sender: FDA-Public Use
  Company Number: US-MERCK-1103USA03954

PATIENT
  Age: 65 Year
  Sex: Female

DRUGS (2)
  1. FOSAMAX PLUS D [Suspect]
     Indication: OSTEOPOROSIS
     Route: 048
     Dates: start: 20010901, end: 20100901
  2. FOSAMAX [Suspect]
     Route: 048
     Dates: start: 20010901, end: 20100901

REACTIONS (3)
  - FEMUR FRACTURE [None]
  - FALL [None]
  - WRIST FRACTURE [None]
